FAERS Safety Report 8025087-9 (Version None)
Quarter: 2012Q1

REPORT INFORMATION
  Report Type: 
  Country: None (occurrence: None)
  Receive Date: 20120105
  Receipt Date: 20120105
  Transmission Date: 20120608
  Serious: Yes (Hospitalization)
  Sender: FDA-Public Use
  Company Number: JP-BAYER-2011-050739

PATIENT
  Age: 81 Year
  Sex: Female
  Weight: 37 kg

DRUGS (21)
  1. SORAFENIB (RAF KINASE INHIBITOR) [Suspect]
     Dosage: 200 MG, QD
     Route: 048
     Dates: start: 20110311, end: 20110610
  2. MS CONTIN [Concomitant]
     Indication: HEADACHE
     Dosage: 10 MG, BID
     Route: 048
     Dates: start: 20110121, end: 20110610
  3. LOXONIN [Concomitant]
     Indication: BACK PAIN
     Dosage: UNK
     Route: 062
     Dates: start: 20070101
  4. MS CONTIN [Concomitant]
     Indication: PAIN
     Dosage: DAILY DOSE 10 MG
     Route: 041
     Dates: start: 20110611, end: 20110623
  5. VERAPAMIL HCL [Concomitant]
     Indication: SUPRAVENTRICULAR TACHYCARDIA
     Dosage: 5 MG, QD
     Route: 041
     Dates: start: 20110612
  6. SORAFENIB (RAF KINASE INHIBITOR) [Suspect]
     Dosage: 400 MG, QD
     Dates: start: 20110210
  7. CANDESARTAN CILEXETIL [Concomitant]
     Indication: HYPERTENSION
     Dosage: 8 MG, QD
     Route: 048
     Dates: start: 20040101, end: 20110610
  8. LEVOTHYROXINE SODIUM [Concomitant]
     Indication: HYPOTHYROIDISM
     Dosage: 150 ?G, QD
     Route: 048
     Dates: start: 20060601
  9. CALCIUM LACTATE [Concomitant]
     Indication: HYPOCALCAEMIA
     Dosage: 3 G, BID
     Route: 048
     Dates: start: 20040801
  10. FAMOTIDINE [Concomitant]
     Indication: GASTRITIS PROPHYLAXIS
     Dosage: 10 MG, QD
     Route: 048
     Dates: start: 20101109
  11. MORPHINE [Concomitant]
     Indication: COUGH
     Dosage: 5 MG, PRN
     Route: 048
     Dates: start: 20110114
  12. HIRUDOID [Concomitant]
     Indication: PALMAR-PLANTAR ERYTHRODYSAESTHESIA SYNDROME
     Dosage: UNK
     Route: 061
     Dates: start: 20110210
  13. FAMOTIDINE [Concomitant]
     Indication: VOMITING
     Dosage: 20 MG, QD
     Route: 041
     Dates: start: 20110612
  14. SORAFENIB (RAF KINASE INHIBITOR) [Suspect]
     Dosage: 600 MG, QD
     Route: 048
     Dates: start: 20110128, end: 20110209
  15. OXYGEN [Concomitant]
     Indication: OXYGEN SUPPLEMENTATION
     Dosage: UNK
     Route: 045
     Dates: start: 20110101
  16. LOXONIN [Concomitant]
     Indication: LUMBAR SPINAL STENOSIS
     Dosage: 60 MG, PRN
     Route: 048
     Dates: start: 20100601, end: 20110610
  17. ALFAROL [Concomitant]
     Indication: HYPOPARATHYROIDISM
     Dosage: 1 ?G, QD
     Route: 048
     Dates: start: 20110305
  18. MS CONTIN [Concomitant]
     Indication: COUGH
  19. MS CONTIN [Concomitant]
     Dosage: UNK
     Route: 048
     Dates: start: 20110623
  20. SORAFENIB (RAF KINASE INHIBITOR) [Suspect]
     Indication: THYROID CANCER
     Dosage: 800 MG, QD
     Route: 048
     Dates: start: 20110120, end: 20110128
  21. MAGNESIUM SULFATE [Concomitant]
     Indication: CONSTIPATION PROPHYLAXIS
     Dosage: 250 MG, TID
     Route: 048
     Dates: start: 20110111

REACTIONS (1)
  - CEREBRAL ISCHAEMIA [None]
